FAERS Safety Report 5907861-5 (Version None)
Quarter: 2008Q4

REPORT INFORMATION
  Report Type: 
  Country: None (occurrence: None)
  Receive Date: 20081003
  Receipt Date: 20080922
  Transmission Date: 20090506
  Serious: Yes (Other)
  Sender: FDA-Public Use
  Company Number: IT-PFIZER INC-2008080333

PATIENT
  Sex: Female

DRUGS (1)
  1. PREGABALIN [Suspect]

REACTIONS (4)
  - DIZZINESS [None]
  - EYE DISORDER [None]
  - EYE OEDEMA [None]
  - NAUSEA [None]
